FAERS Safety Report 22003518 (Version 1)
Quarter: 2023Q1

REPORT INFORMATION
  Report Type: Other
  Country: US (occurrence: None)
  Receive Date: 20230217
  Receipt Date: 20230217
  Transmission Date: 20230418
  Serious: Yes (Hospitalization, Other)
  Sender: FDA-Public Use
  Company Number: US-ROCHE-3285862

PATIENT
  Age: 67 Year
  Sex: Female

DRUGS (1)
  1. ROZLYTREK [Suspect]
     Active Substance: ENTRECTINIB
     Indication: Lung neoplasm malignant
     Dosage: TAKE 3 CAPSULE(S) BY MOUTH EVERY DAY
     Route: 048

REACTIONS (3)
  - Cardiac valve disease [Unknown]
  - Cardiac failure [Unknown]
  - Neoplasm malignant [Unknown]
